FAERS Safety Report 5969681-5 (Version None)
Quarter: 2008Q4

REPORT INFORMATION
  Report Type: 
  Country: None (occurrence: None)
  Receive Date: 20081126
  Receipt Date: 20080918
  Transmission Date: 20090506
  Serious: No
  Sender: FDA-Public Use
  Company Number: US-ABBOTT-08P-163-0477048-00

PATIENT
  Sex: Male
  Weight: 113.5 kg

DRUGS (4)
  1. SIMCOR [Suspect]
     Indication: BLOOD CHOLESTEROL INCREASED
     Dosage: 500/20 MG
     Route: 048
     Dates: start: 20080701
  2. SIMCOR [Suspect]
     Dosage: 1000/20 MG
     Route: 048
  3. LISINOPRIL [Concomitant]
     Indication: BLOOD PRESSURE
     Dosage: EVERY MORNING
     Route: 048
  4. EQUATE BRAND OF GENERIC CLARITIN [Concomitant]
     Indication: HYPERSENSITIVITY
     Route: 048

REACTIONS (3)
  - ARTHRALGIA [None]
  - FLUSHING [None]
  - MYALGIA [None]
